FAERS Safety Report 5295676-3 (Version None)
Quarter: 2007Q2

REPORT INFORMATION
  Report Type: 
  Country: None (occurrence: None)
  Receive Date: 20070410
  Receipt Date: 20070410
  Transmission Date: 20071010
  Serious: Yes (Other)
  Sender: FDA-Public Use
  Company Number: None

PATIENT

DRUGS (1)
  1. EFFEXOR XR [Suspect]
     Indication: DEPRESSION

REACTIONS (2)
  - DRUG WITHDRAWAL SYNDROME [None]
  - PARAESTHESIA [None]
